FAERS Safety Report 6908302-1 (Version None)
Quarter: 2010Q3

REPORT INFORMATION
  Report Type: 
  Country: None (occurrence: None)
  Receive Date: 20100805
  Receipt Date: 20100727
  Transmission Date: 20110219
  Serious: Yes (Hospitalization)
  Sender: FDA-Public Use
  Company Number: FR-ROCHE-718348

PATIENT
  Sex: Male
  Weight: 61 kg

DRUGS (8)
  1. ROACTEMRA [Suspect]
     Indication: RHEUMATOID ARTHRITIS
     Dosage: FORM: INFUSION
     Route: 042
     Dates: start: 20090422, end: 20091207
  2. ROACTEMRA [Suspect]
     Route: 042
     Dates: start: 20100105
  3. CORTANCYL [Concomitant]
     Indication: RHEUMATOID ARTHRITIS
     Route: 048
     Dates: start: 20090401
  4. PARACETAMOL [Concomitant]
     Indication: RHEUMATOID ARTHRITIS
     Route: 048
     Dates: start: 20090520
  5. METHOTREXATE [Concomitant]
     Indication: RHEUMATOID ARTHRITIS
     Route: 058
     Dates: start: 20081101, end: 20091001
  6. TAHOR [Concomitant]
     Dates: start: 20070726
  7. PLAVIX [Concomitant]
     Dosage: 1 DOSE DAILY
     Route: 048
     Dates: start: 20070726
  8. RIMIFON [Concomitant]
     Dosage: INDICATION: KOCH BACILLUS PREVENTION; 02 DOSES DAILY
     Route: 048
     Dates: start: 20090301

REACTIONS (1)
  - ANAEMIA MACROCYTIC [None]
